FAERS Safety Report 25806660 (Version 1)
Quarter: 2025Q3

REPORT INFORMATION
  Report Type: Spontaneous
  Country: US (occurrence: US)
  Receive Date: 20250916
  Receipt Date: 20250916
  Transmission Date: 20251021
  Serious: Yes (Other)
  Sender: AUROBINDO
  Company Number: US-MLMSERVICE-20250827-PI626506-00306-1

PATIENT
  Age: 72 Year
  Sex: Male

DRUGS (2)
  1. PREDNISONE [Suspect]
     Active Substance: PREDNISONE
     Indication: Immunosuppressant drug therapy
     Dosage: 20 MILLIGRAM, ONCE A DAY
     Route: 065
     Dates: start: 2002
  2. TACROLIMUS [Suspect]
     Active Substance: TACROLIMUS
     Indication: Immunosuppressant drug therapy
     Dosage: 4 MILLIGRAM, ONCE A DAY
     Route: 065
     Dates: start: 2002

REACTIONS (2)
  - Phaeohyphomycosis [Recovering/Resolving]
  - Scedosporium infection [Recovered/Resolved]

NARRATIVE: CASE EVENT DATE: 20181201
